FAERS Safety Report 10462468 (Version 4)
Quarter: 2014Q4

REPORT INFORMATION
  Report Type: Spontaneous
  Country: JP (occurrence: JP)
  Receive Date: 20140918
  Receipt Date: 20141108
  Transmission Date: 20150528
  Serious: Yes (Hospitalization)
  Sender: FDA-Public Use
  Company Number: JP-ABBVIE-13P-087-1176872-00

PATIENT
  Age: 36 Year
  Sex: Male
  Weight: 85 kg

DRUGS (6)
  1. HUMIRA [Suspect]
     Active Substance: ADALIMUMAB
     Indication: INTESTINAL FISTULA
     Route: 058
     Dates: start: 20131119, end: 20131119
  2. HUMIRA [Suspect]
     Active Substance: ADALIMUMAB
     Route: 058
  3. MESALAZINE [Concomitant]
     Active Substance: MESALAMINE
     Indication: CROHN^S DISEASE
     Route: 048
     Dates: start: 20130521, end: 20131204
  4. CIPROFLOXACIN. [Concomitant]
     Active Substance: CIPROFLOXACIN
     Indication: CROHN^S DISEASE
     Route: 048
     Dates: start: 20130903, end: 20131204
  5. HUMIRA [Suspect]
     Active Substance: ADALIMUMAB
     Indication: CROHN^S DISEASE
     Route: 058
     Dates: start: 20131105, end: 20131105
  6. HUMIRA [Suspect]
     Active Substance: ADALIMUMAB
     Route: 058

REACTIONS (13)
  - Abdominal pain lower [Unknown]
  - Ileal stenosis [Unknown]
  - Ileal stenosis [Unknown]
  - White blood cell count decreased [Unknown]
  - Ileal fistula [Unknown]
  - Intestinal fistula [Unknown]
  - Ileal ulcer [Unknown]
  - C-reactive protein increased [Unknown]
  - Small intestinal ulcer perforation [Unknown]
  - Fistula [Unknown]
  - Abdominal abscess [Recovered/Resolved]
  - Pyrexia [Unknown]
  - Adhesion [Unknown]

NARRATIVE: CASE EVENT DATE: 20131105
